FAERS Safety Report 4422159-2 (Version None)
Quarter: 2004Q3

REPORT INFORMATION
  Report Type: 
  Country: None (occurrence: None)
  Receive Date: 20040806
  Receipt Date: 20040723
  Transmission Date: 20050211
  Serious: No
  Sender: FDA-Public Use
  Company Number: 04H-163-0268228-00

PATIENT
  Sex: Female

DRUGS (2)
  1. LIDOCAINE HCL 1% INJECTION, USP, AMPULE (LIDOCAINE HYDROCHLORIDE) (LID [Suspect]
     Indication: SPINAL ANAESTHESIA
     Dosage: INTRASPINAL
     Route: 024
     Dates: start: 20040101
  2. EPINEPHRINE 1 MG/ML INJECTION, USP, 1 ML AMPULE (EPINEPHRINE ) ( EPINE [Suspect]
     Indication: SPINAL ANAESTHESIA
     Dosage: INTRASPINAL
     Route: 024
     Dates: start: 20040101

REACTIONS (3)
  - ANAESTHETIC COMPLICATION [None]
  - DRUG EXPOSURE DURING PREGNANCY [None]
  - MENINGITIS [None]
